FAERS Safety Report 21272684 (Version 1)
Quarter: 2022Q3

REPORT INFORMATION
  Report Type: Spontaneous
  Country: US (occurrence: None)
  Receive Date: 20220830
  Receipt Date: 20220830
  Transmission Date: 20221027
  Serious: No
  Sender: FDA-Public Use
  Company Number: 2022A293163

PATIENT
  Sex: Male
  Weight: 83.9 kg

DRUGS (4)
  1. SEROQUEL [Suspect]
     Active Substance: QUETIAPINE FUMARATE
     Indication: Bipolar I disorder
     Dosage: PATIENT REPORTED STARTING AT SEROQUEL 50MG AND THEN 100MG AND THEN 200MG AND SETTLED FOR 300MG
     Route: 048
  2. QUETIAPINE FUMARATE [Suspect]
     Active Substance: QUETIAPINE FUMARATE
     Indication: Bipolar I disorder
     Route: 065
  3. MIRTAZAPINE [Concomitant]
     Active Substance: MIRTAZAPINE
  4. DOXEPIN [Concomitant]
     Active Substance: DOXEPIN

REACTIONS (7)
  - Overdose [Unknown]
  - Somnolence [Unknown]
  - Dizziness [Unknown]
  - Insomnia [Unknown]
  - Hyperacusis [Unknown]
  - Weight fluctuation [Unknown]
  - Off label use [Unknown]
